FAERS Safety Report 18334253 (Version 1)
Quarter: 2020Q4

REPORT INFORMATION
  Report Type: Other
  Country: CN (occurrence: CN)
  Receive Date: 20201001
  Receipt Date: 20201001
  Transmission Date: 20210113
  Serious: Yes (Hospitalization, Other)
  Sender: FDA-Public Use
  Company Number: CN-ASTELLAS-2020US034065

PATIENT
  Age: 13 Year
  Sex: Female
  Weight: 30 kg

DRUGS (7)
  1. HYDROXYCHLOROQUINE [Concomitant]
     Active Substance: HYDROXYCHLOROQUINE
     Indication: PRODUCT USED FOR UNKNOWN INDICATION
     Route: 065
  2. METHYLPREDNISOLONE SODIUM SUCCINATE. [Suspect]
     Active Substance: METHYLPREDNISOLONE SODIUM SUCCINATE
     Indication: IMMUNOSUPPRESSION
     Dosage: 500 MG, OTHER (ONCE EVERY TWO DAYS)
     Route: 041
     Dates: start: 20200903, end: 20200908
  3. PROGRAF [Suspect]
     Active Substance: TACROLIMUS
     Indication: IMMUNOSUPPRESSION
     Route: 048
     Dates: start: 20190425
  4. MYCOPHENOLATE MOFETIL. [Concomitant]
     Active Substance: MYCOPHENOLATE MOFETIL
     Indication: IMMUNOSUPPRESSION
     Dosage: 0.25 G, EVERY 12 HOURS
     Route: 065
  5. PROGRAF [Suspect]
     Active Substance: TACROLIMUS
     Dosage: 1.5 MG IN MORNING AND 1.0 MG IN THE EVENING
     Route: 048
     Dates: end: 20200906
  6. CYCLOPHOSPHAMIDE. [Concomitant]
     Active Substance: CYCLOPHOSPHAMIDE
     Indication: PRODUCT USED FOR UNKNOWN INDICATION
     Dosage: UNK UNK, UNKNOWN FREQ.
     Route: 065
  7. PREDNISONE. [Concomitant]
     Active Substance: PREDNISONE
     Indication: PRODUCT USED FOR UNKNOWN INDICATION
     Route: 065

REACTIONS (9)
  - Tremor [Recovering/Resolving]
  - Condition aggravated [Recovering/Resolving]
  - Agitation [Recovering/Resolving]
  - Initial insomnia [Unknown]
  - Tinnitus [Unknown]
  - Hypoxic-ischaemic encephalopathy [Recovering/Resolving]
  - Lupus nephritis [Recovering/Resolving]
  - Butterfly rash [Unknown]
  - Logorrhoea [Unknown]

NARRATIVE: CASE EVENT DATE: 202008
